FAERS Safety Report 5060061-6 (Version None)
Quarter: 2006Q3

REPORT INFORMATION
  Report Type: 
  Country: None (occurrence: None)
  Receive Date: 20060719
  Receipt Date: 20060710
  Transmission Date: 20061208
  Serious: Yes (Death, Life-Threatening, Disabling, Other)
  Sender: FDA-Public Use
  Company Number: 200612762GDS

PATIENT
  Age: 79 Year
  Sex: Female
  Weight: 58 kg

DRUGS (14)
  1. AVELOX [Suspect]
     Indication: PNEUMONIA
     Dosage: 400 MG, ONCE, INTRAVENOUS
     Route: 042
     Dates: start: 20060627
  2. OMEPRAZOLE [Concomitant]
  3. MAXIPIME [Concomitant]
  4. ATENOLOL [Concomitant]
  5. AMLODIPINE [Concomitant]
  6. CLEXANE [Concomitant]
  7. CAPTOPRIL [Concomitant]
  8. DIPIRONA [Concomitant]
  9. PROFENID [Concomitant]
  10. BERODUAL [Concomitant]
  11. NISTATIN [Concomitant]
  12. LASIX [Concomitant]
  13. DEBRIDAT [Concomitant]
  14. METRONIDAZOLE [Concomitant]

REACTIONS (12)
  - ARRHYTHMIA [None]
  - ATRIOVENTRICULAR BLOCK THIRD DEGREE [None]
  - CONDUCTION DISORDER [None]
  - COUGH [None]
  - DYSARTHRIA [None]
  - DYSPNOEA [None]
  - ELECTROCARDIOGRAM ST SEGMENT ABNORMAL [None]
  - MALAISE [None]
  - PNEUMONIA [None]
  - RASH [None]
  - STUPOR [None]
  - VOMITING [None]
